FAERS Safety Report 19385029 (Version 1)
Quarter: 2021Q2

REPORT INFORMATION
  Report Type: Spontaneous
  Country: FR (occurrence: FR)
  Receive Date: 20210608
  Receipt Date: 20210608
  Transmission Date: 20210717
  Serious: Yes (Other)
  Sender: FDA-Public Use
  Company Number: FR-AUROBINDO-AUR-APL-2021-023436

PATIENT
  Sex: Male

DRUGS (4)
  1. MELPHALAN. [Suspect]
     Active Substance: MELPHALAN
     Indication: FOLLICULAR LYMPHOMA
     Dosage: 275 MILLIGRAM, ONCE A DAY
     Route: 042
     Dates: start: 20190814, end: 20190814
  2. CARMUSTINE. [Suspect]
     Active Substance: CARMUSTINE
     Indication: FOLLICULAR LYMPHOMA
     Dosage: 585 MILLIGRAM, ONCE A DAY
     Route: 065
     Dates: start: 20190809, end: 20190809
  3. ETOPOSIDE. [Suspect]
     Active Substance: ETOPOSIDE
     Indication: FOLLICULAR LYMPHOMA
     Dosage: 780 MILLIGRAM, ONCE A DAY
     Route: 042
     Dates: start: 20190810, end: 20190813
  4. CYTARABINE. [Suspect]
     Active Substance: CYTARABINE
     Indication: FOLLICULAR LYMPHOMA
     Dosage: 20530 MILLIGRAM
     Route: 042
     Dates: start: 20190401, end: 20190813

REACTIONS (1)
  - Colitis [Not Recovered/Not Resolved]

NARRATIVE: CASE EVENT DATE: 201908
